FAERS Safety Report 24305817 (Version 1)
Quarter: 2024Q3

REPORT INFORMATION
  Report Type: Spontaneous
  Country: JP (occurrence: JP)
  Receive Date: 20240911
  Receipt Date: 20240911
  Transmission Date: 20241016
  Serious: Yes (Hospitalization, Other)
  Sender: RANBAXY
  Company Number: JP-SUN PHARMACEUTICAL INDUSTRIES LTD-2024R1-467124

PATIENT
  Age: 65 Year
  Sex: Male

DRUGS (7)
  1. CISPLATIN [Suspect]
     Active Substance: CISPLATIN
     Indication: Lip and/or oral cavity cancer
     Dosage: 100 MILLIGRAM/SQ. METER
     Route: 065
  2. DEXAMETHASONE [Suspect]
     Active Substance: DEXAMETHASONE
     Indication: Nausea
     Dosage: 9.9 MILLIGRAM
     Route: 065
  3. DEXAMETHASONE [Suspect]
     Active Substance: DEXAMETHASONE
     Indication: Vomiting
  4. PALONOSETRON [Suspect]
     Active Substance: PALONOSETRON
     Indication: Vomiting
     Dosage: 0.75 MILLIGRAM
     Route: 065
  5. PALONOSETRON [Suspect]
     Active Substance: PALONOSETRON
     Indication: Nausea
  6. FOSNETUPITANT [Suspect]
     Active Substance: FOSNETUPITANT
     Indication: Vomiting
     Dosage: 235 MILLIGRAM
     Route: 065
  7. FOSNETUPITANT [Suspect]
     Active Substance: FOSNETUPITANT
     Indication: Nausea

REACTIONS (1)
  - Mucosal inflammation [Unknown]
